FAERS Safety Report 24948743 (Version 1)
Quarter: 2025Q1

REPORT INFORMATION
  Report Type: Report from Study
  Country: US (occurrence: US)
  Receive Date: 20250210
  Receipt Date: 20250210
  Transmission Date: 20250409
  Serious: Yes (Hospitalization)
  Sender: GALDERMA
  Company Number: US-GALDERMA-US2025001431

PATIENT

DRUGS (3)
  1. NEMOLIZUMAB-ILTO [Suspect]
     Active Substance: NEMOLIZUMAB-ILTO
     Indication: Gait disturbance
     Route: 058
  2. NEMOLIZUMAB-ILTO [Suspect]
     Active Substance: NEMOLIZUMAB-ILTO
     Indication: Muscular weakness
  3. ASPIRIN [Concomitant]
     Active Substance: ASPIRIN
     Indication: Product used for unknown indication
     Route: 065

REACTIONS (2)
  - Muscle spasms [Unknown]
  - Intentional product use issue [Recovered/Resolved]
